FAERS Safety Report 7775595-0 (Version None)
Quarter: 2011Q3

REPORT INFORMATION
  Report Type: 
  Country: None (occurrence: None)
  Receive Date: 20110921
  Receipt Date: 20110909
  Transmission Date: 20111222
  Serious: Yes (Hospitalization)
  Sender: FDA-Public Use
  Company Number: DSA_47594_2011

PATIENT

DRUGS (2)
  1. DULOXETIME HYDROCHLORIDE [Suspect]
     Indication: PRODUCT USED FOR UNKNOWN INDICATION
     Dosage: 120 MG, DAILY
  2. WELLBUTRIN XL [Suspect]
     Indication: PRODUCT USED FOR UNKNOWN INDICATION
     Dosage: 300 MG, DAILY

REACTIONS (9)
  - HOT FLUSH [None]
  - VISION BLURRED [None]
  - TACHYCARDIA [None]
  - DRUG INTERACTION [None]
  - SUICIDAL IDEATION [None]
  - MIGRAINE [None]
  - AMENORRHOEA [None]
  - ANTIDEPRESSANT DRUG LEVEL INCREASED [None]
  - HYPERHIDROSIS [None]
